FAERS Safety Report 9578609 (Version 2)
Quarter: 2013Q4

REPORT INFORMATION
  Report Type: Spontaneous
  Country: US (occurrence: US)
  Receive Date: 20131001
  Receipt Date: 20131001
  Transmission Date: 20140711
  Serious: No
  Sender: FDA-Public Use
  Company Number: US-AMGEN-USASP2013011227

PATIENT
  Sex: Male

DRUGS (1)
  1. ENBREL [Suspect]
     Indication: ANKYLOSING SPONDYLITIS
     Dosage: 50 MG, WHEN HE HAS A FLARE
     Dates: start: 20061004

REACTIONS (2)
  - Ankylosing spondylitis [Recovered/Resolved]
  - Inappropriate schedule of drug administration [Recovered/Resolved]
